FAERS Safety Report 17330047 (Version 1)
Quarter: 2020Q1

REPORT INFORMATION
  Report Type: Spontaneous
  Country: HU (occurrence: HU)
  Receive Date: 20200128
  Receipt Date: 20200128
  Transmission Date: 20200409
  Serious: Yes (Other)
  Sender: FDA-Public Use
  Company Number: HU-MYLANLABS-2020M1008820

PATIENT
  Age: 48 Year
  Sex: Male

DRUGS (4)
  1. FLUOROURACIL. [Suspect]
     Active Substance: FLUOROURACIL
     Indication: PRODUCT USED FOR UNKNOWN INDICATION
     Dosage: UNK
     Route: 065
  2. ERBITUX [Suspect]
     Active Substance: CETUXIMAB
     Indication: PRODUCT USED FOR UNKNOWN INDICATION
     Dosage: UNK
     Route: 065
  3. CARBOPLATIN. [Suspect]
     Active Substance: CARBOPLATIN
     Indication: PRODUCT USED FOR UNKNOWN INDICATION
     Dosage: UNK
     Route: 065
  4. PACLITAXEL. [Suspect]
     Active Substance: PACLITAXEL
     Indication: PRODUCT USED FOR UNKNOWN INDICATION
     Dosage: UNK
     Route: 065

REACTIONS (9)
  - Metastases to bone [Unknown]
  - Metastases to lymph nodes [Unknown]
  - Metastatic renal cell carcinoma [Recovering/Resolving]
  - Pharyngeal cancer [Unknown]
  - Head and neck cancer metastatic [Unknown]
  - Bone disorder [Unknown]
  - Metastases to kidney [Unknown]
  - Metastases to skin [Unknown]
  - Metastases to spine [Unknown]

NARRATIVE: CASE EVENT DATE: 201711
